FAERS Safety Report 8986167 (Version 1)
Quarter: 2012Q4

REPORT INFORMATION
  Report Type: Spontaneous
  Country: US (occurrence: None)
  Receive Date: 20121219
  Receipt Date: 20121219
  Transmission Date: 20130627
  Serious: Yes (Hospitalization)
  Sender: FDA-Public Use
  Company Number: None

PATIENT
  Age: 29 Year
  Sex: Male
  Weight: 91 kg

DRUGS (4)
  1. TRAMADOL [Suspect]
     Indication: BACK PAIN
     Dosage: 50 mg prn po
prior to admission
     Route: 048
  2. IBUPROFEN [Concomitant]
  3. CYCLOBENZAPRINE [Concomitant]
  4. MULTIVITAMIN [Concomitant]

REACTIONS (6)
  - Grand mal convulsion [None]
  - Eye injury [None]
  - Fall [None]
  - Convulsive threshold lowered [None]
  - Rhabdomyolysis [None]
  - Renal failure acute [None]
